FAERS Safety Report 9379009 (Version 1)
Quarter: 2013Q3

REPORT INFORMATION
  Report Type: Spontaneous
  Country: AU (occurrence: AU)
  Receive Date: 20130702
  Receipt Date: 20130702
  Transmission Date: 20140515
  Serious: Yes (Death)
  Sender: FDA-Public Use
  Company Number: AU-ROCHE-1241551

PATIENT
  Age: 57 Year
  Sex: Male

DRUGS (3)
  1. MYCOPHENOLATE MOFETIL [Suspect]
     Indication: PRODUCT USED FOR UNKNOWN INDICATION
     Route: 065
  2. PREDNISONE [Concomitant]
     Route: 065
  3. TACROLIMUS [Concomitant]
     Route: 065

REACTIONS (19)
  - Lung infiltration [Fatal]
  - Lung infection [Fatal]
  - Lung neoplasm [Fatal]
  - Pleural effusion [Fatal]
  - Lymphadenopathy mediastinal [Fatal]
  - Dyspnoea [Fatal]
  - Diarrhoea [Fatal]
  - Pneumocystis jirovecii pneumonia [Fatal]
  - Nausea [Fatal]
  - Weight decreased [Fatal]
  - Nephropathy toxic [Fatal]
  - Hypoxia [Fatal]
  - Renal impairment [Fatal]
  - Lethargy [Fatal]
  - Tubulointerstitial nephritis [Fatal]
  - Respiratory distress [Fatal]
  - Pyrexia [Fatal]
  - Vomiting [Fatal]
  - Rhodococcus infection [Fatal]
